FAERS Safety Report 14301385 (Version 3)
Quarter: 2018Q1

REPORT INFORMATION
  Report Type: Report from Study
  Country: CN (occurrence: CN)
  Receive Date: 20171219
  Receipt Date: 20180119
  Transmission Date: 20180509
  Serious: Yes (Hospitalization)
  Sender: FDA-Public Use
  Company Number: CN-ROCHE-2040770

PATIENT
  Age: 46 Year
  Sex: Male
  Weight: 55 kg

DRUGS (22)
  1. CARBOPLATIN. [Suspect]
     Active Substance: CARBOPLATIN
     Indication: SMALL CELL LUNG CANCER EXTENSIVE STAGE
     Dosage: CARBOPLATIN INTRAVENOUS INFUSION TO ACHIEVE AN INITIAL TARGET AUC OF 5 MG/ML/MIN WILL BE ADMINISTERE
     Route: 042
     Dates: start: 20170928
  2. GLUCOSE/POTASSIUM CHLORIDE/SODIUM CHLORIDE [Concomitant]
     Route: 042
     Dates: start: 20171130, end: 20171204
  3. ONDANSETRON HYDROCHLORIDE. [Concomitant]
     Active Substance: ONDANSETRON HYDROCHLORIDE
     Indication: VOMITING
     Route: 042
     Dates: start: 20171109, end: 20171111
  4. VITAMIN C [Concomitant]
     Active Substance: ASCORBIC ACID
     Route: 065
     Dates: start: 20171111, end: 20171113
  5. ONDANSETRON HYDROCHLORIDE. [Concomitant]
     Active Substance: ONDANSETRON HYDROCHLORIDE
     Route: 042
     Dates: start: 20171112, end: 20171112
  6. POTASSIUM CHLORIDE. [Concomitant]
     Active Substance: POTASSIUM CHLORIDE
     Route: 042
     Dates: start: 20171111, end: 20171113
  7. STRUCTOLIPID [Concomitant]
     Active Substance: UNSPECIFIED INGREDIENT
     Route: 042
     Dates: start: 20171109, end: 20171111
  8. LANSOPRAZOLE. [Concomitant]
     Active Substance: LANSOPRAZOLE
     Route: 042
     Dates: start: 20171109, end: 20171113
  9. ETOPOSIDE. [Suspect]
     Active Substance: ETOPOSIDE
     Indication: SMALL CELL LUNG CANCER EXTENSIVE STAGE
     Dosage: INTRAVENOUS INFUSION WILL BE ADMINISTERED AT A DOSE OF 100 MG/M^2 ON DAYS 1, 2, AND 3 OF EACH 21-DA
     Route: 042
     Dates: start: 20170928
  10. EMEND [Concomitant]
     Active Substance: APREPITANT
     Indication: VOMITING
     Route: 048
     Dates: start: 20171110, end: 20171111
  11. GLUCOSE/POTASSIUM CHLORIDE/SODIUM CHLORIDE [Concomitant]
     Route: 042
     Dates: start: 20171109, end: 20171111
  12. PROMETHAZINE HYDROCHLORIDE. [Concomitant]
     Active Substance: PROMETHAZINE HYDROCHLORIDE
     Indication: VOMITING
     Route: 030
     Dates: start: 20171111, end: 20171111
  13. ATEZOLIZUMAB. [Suspect]
     Active Substance: ATEZOLIZUMAB
     Indication: SMALL CELL LUNG CANCER EXTENSIVE STAGE
     Dosage: MOST RECENT DOSE (1200MG) PRIOR TO SERIOUS ADVERSE EVENT ON 30/NOV/2017 AT 11:33
     Route: 042
     Dates: start: 20170928
  14. ONDANSETRON HYDROCHLORIDE. [Concomitant]
     Active Substance: ONDANSETRON HYDROCHLORIDE
     Route: 042
     Dates: start: 20171130, end: 20171202
  15. FERROUS SUCCINATE [Concomitant]
     Active Substance: FERROUS SUCCINATE
     Indication: ANAEMIA
     Route: 048
  16. EMEND [Concomitant]
     Active Substance: APREPITANT
     Route: 048
     Dates: start: 20171201, end: 20171202
  17. TORASEMIDE [Concomitant]
     Active Substance: TORSEMIDE
     Indication: POLYURIA
     Route: 042
     Dates: start: 20171130, end: 20171130
  18. MEDIUM AND LONG CHAIN FAT EMULSION [Concomitant]
     Route: 042
     Dates: start: 20171130, end: 20171204
  19. EMEND [Concomitant]
     Active Substance: APREPITANT
     Route: 048
     Dates: start: 20171130, end: 20171130
  20. GLUCOSE/SODIUM CHLORIDE [Concomitant]
     Active Substance: DEXTROSE\SODIUM CHLORIDE
     Route: 042
     Dates: start: 20171111, end: 20171113
  21. LANSOPRAZOLE. [Concomitant]
     Active Substance: LANSOPRAZOLE
     Route: 042
     Dates: start: 20171130, end: 20171204
  22. FERROUS SUCCINATE [Concomitant]
     Active Substance: FERROUS SUCCINATE
     Route: 048
     Dates: start: 20171211

REACTIONS (1)
  - Bone marrow failure [Recovered/Resolved]

NARRATIVE: CASE EVENT DATE: 20171211
